FAERS Safety Report 16628403 (Version 2)
Quarter: 2019Q3

REPORT INFORMATION
  Report Type: Report from Study
  Country: None (occurrence: IL)
  Receive Date: 20190724
  Receipt Date: 20190819
  Transmission Date: 20191004
  Serious: Yes (Hospitalization)
  Sender: FDA-Public Use
  Company Number: IL-ABBVIE-19K-082-2862035-00

PATIENT
  Sex: Female

DRUGS (4)
  1. HUMIRA [Suspect]
     Active Substance: ADALIMUMAB
     Indication: CROHN^S DISEASE
     Route: 058
     Dates: start: 20120328
  2. HUMIRA [Suspect]
     Active Substance: ADALIMUMAB
     Route: 058
  3. HUMIRA [Suspect]
     Active Substance: ADALIMUMAB
     Route: 058
  4. HUMIRA [Suspect]
     Active Substance: ADALIMUMAB
     Route: 058

REACTIONS (8)
  - Intestinal stenosis [Unknown]
  - Crohn^s disease [Unknown]
  - Memory impairment [Unknown]
  - Haematoma [Not Recovered/Not Resolved]
  - Pyrexia [Unknown]
  - Exposure during pregnancy [Unknown]
  - Product storage error [Unknown]
  - Live birth [Unknown]

NARRATIVE: CASE EVENT DATE: 2017
